FAERS Safety Report 12836371 (Version 1)
Quarter: 2016Q4

REPORT INFORMATION
  Report Type: Spontaneous
  Country: SK (occurrence: SK)
  Receive Date: 20161011
  Receipt Date: 20161011
  Transmission Date: 20170207
  Serious: Yes (Hospitalization)
  Sender: FDA-Public Use
  Company Number: SK-IPCA LABORATORIES LIMITED-IPC201609-000825

PATIENT
  Age: 73 Year
  Sex: Female

DRUGS (3)
  1. METFORMIN HYDROCHLORIDE. [Suspect]
     Active Substance: METFORMIN HYDROCHLORIDE
  2. GLIBENCLAMIDE [Concomitant]
     Active Substance: GLYBURIDE
  3. INSUMAN [Concomitant]
     Active Substance: INSULIN HUMAN

REACTIONS (2)
  - Lactic acidosis [Recovering/Resolving]
  - Renal failure [Recovering/Resolving]
